FAERS Safety Report 23947647 (Version 1)
Quarter: 2024Q2

REPORT INFORMATION
  Report Type: Spontaneous
  Country: AU (occurrence: AU)
  Receive Date: 20240606
  Receipt Date: 20240606
  Transmission Date: 20240716
  Serious: Yes (Hospitalization)
  Sender: FDA-Public Use
  Company Number: AU-GE HEALTHCARE-2024CSU006001

PATIENT
  Age: 59 Year
  Sex: Female
  Weight: 63 kg

DRUGS (3)
  1. OMNIPAQUE [Suspect]
     Active Substance: IOHEXOL
     Indication: Computerised tomogram heart
     Dosage: 70 ML, TOTAL
     Route: 042
     Dates: start: 20240514, end: 20240514
  2. SOTALOL [Concomitant]
     Active Substance: SOTALOL
     Dosage: ON DAILY DOSE AS PER SPECIALIST
  3. NITROGLYCERIN [Concomitant]
     Active Substance: NITROGLYCERIN
     Dosage: UNK
     Route: 060

REACTIONS (6)
  - Sneezing [Recovered/Resolved]
  - Nasal obstruction [Recovered/Resolved]
  - Lip pruritus [Recovered/Resolved]
  - Eye pruritus [Recovered/Resolved]
  - Paraesthesia oral [Recovered/Resolved]
  - Cough [Recovered/Resolved]

NARRATIVE: CASE EVENT DATE: 20240514
